FAERS Safety Report 15659904 (Version 1)
Quarter: 2018Q4

REPORT INFORMATION
  Report Type: Spontaneous
  Country: SE (occurrence: SE)
  Receive Date: 20181127
  Receipt Date: 20181127
  Transmission Date: 20190205
  Serious: Yes (Other)
  Sender: FDA-Public Use
  Company Number: SE-BAYER-2018-201913

PATIENT
  Sex: Male

DRUGS (1)
  1. AVELOX [Suspect]
     Active Substance: MOXIFLOXACIN HYDROCHLORIDE
     Indication: MYCOPLASMA INFECTION
     Dosage: UNK

REACTIONS (5)
  - Pharyngitis mycoplasmal [None]
  - Fatigue [None]
  - Incorrect product administration duration [None]
  - Drug ineffective [None]
  - Asthenia [None]
